FAERS Safety Report 9254173 (Version 1)
Quarter: 2013Q2

REPORT INFORMATION
  Report Type: Spontaneous
  Country: US (occurrence: None)
  Receive Date: 20130422
  Receipt Date: 20130422
  Transmission Date: 20140414
  Serious: No
  Sender: FDA-Public Use
  Company Number: None

PATIENT
  Age: 32 Year
  Sex: Male
  Weight: 68.4 kg

DRUGS (1)
  1. QUETIAPINE [Suspect]
     Indication: INSOMNIA
     Dosage: 50 MG  AT BEDTIME PO
     Route: 048
     Dates: start: 20121203, end: 20130320

REACTIONS (3)
  - Feeling abnormal [None]
  - Self-injurious ideation [None]
  - Akathisia [None]
